FAERS Safety Report 22135903 (Version 1)
Quarter: 2023Q1

REPORT INFORMATION
  Report Type: Spontaneous
  Country: US (occurrence: None)
  Receive Date: 20230323
  Receipt Date: 20230323
  Transmission Date: 20230417
  Serious: Yes (Other)
  Sender: FDA-Public Use
  Company Number: None

PATIENT
  Age: 33 Year
  Sex: Male
  Weight: 81 kg

DRUGS (1)
  1. FINASTERIDE [Suspect]
     Active Substance: FINASTERIDE

REACTIONS (8)
  - Palpitations [None]
  - Anxiety [None]
  - Depression [None]
  - Lethargy [None]
  - Testicular pain [None]
  - Confusional state [None]
  - Dizziness postural [None]
  - Dyspnoea [None]

NARRATIVE: CASE EVENT DATE: 20230101
